FAERS Safety Report 23539994 (Version 2)
Quarter: 2024Q1

REPORT INFORMATION
  Report Type: Spontaneous
  Country: CN (occurrence: CN)
  Receive Date: 20240219
  Receipt Date: 20240307
  Transmission Date: 20240410
  Serious: Yes (Hospitalization, Other)
  Sender: FDA-Public Use
  Company Number: CN-ELI_LILLY_AND_COMPANY-CN202402004990

PATIENT
  Age: 82 Year
  Sex: Female
  Weight: 47.5 kg

DRUGS (3)
  1. HUMULIN 70/30 [Suspect]
     Active Substance: INSULIN HUMAN
     Indication: Diabetes mellitus
     Dosage: 12 UNITS IN THE MORNING AND 8 UNITS IN THE EVENING
     Route: 065
     Dates: start: 2004
  2. HUMULIN 70/30 [Suspect]
     Active Substance: INSULIN HUMAN
     Dosage: 15 ? 16 UNITS IN THE MORNING AND 12 UNITS IN THE EVENING
     Route: 065
     Dates: start: 2004
  3. HUMULIN 70/30 [Suspect]
     Active Substance: INSULIN HUMAN
     Dosage: 8-10 UNITS IN THE MORNING, 3-4 UNITS AT NIGHT
     Route: 065
     Dates: start: 2004

REACTIONS (22)
  - Cardiac disorder [Unknown]
  - Coronary artery thrombosis [Unknown]
  - Cerebral infarction [Recovered/Resolved with Sequelae]
  - Myocardial infarction [Unknown]
  - Acute myocardial infarction [Unknown]
  - Parkinson^s disease [Unknown]
  - Blood glucose increased [Unknown]
  - Cataract [Recovering/Resolving]
  - Maculopathy [Recovering/Resolving]
  - Visual acuity reduced [Unknown]
  - Insomnia [Unknown]
  - Amnesia [Unknown]
  - Confusional state [Unknown]
  - Spinal deformity [Unknown]
  - Tongue induration [Unknown]
  - Insulin resistance [Unknown]
  - Macular oedema [Recovering/Resolving]
  - Gait disturbance [Unknown]
  - Blood glucose increased [Unknown]
  - Spinal osteoarthritis [Unknown]
  - Musculoskeletal stiffness [Unknown]
  - Product dose omission issue [Unknown]

NARRATIVE: CASE EVENT DATE: 20100101
